FAERS Safety Report 6559782-5 (Version None)
Quarter: 2010Q1

REPORT INFORMATION
  Report Type: 
  Country: None (occurrence: None)
  Receive Date: 20100129
  Receipt Date: 20090908
  Transmission Date: 20100710
  Serious: No
  Sender: FDA-Public Use
  Company Number: US-ABBOTT-09P-163-0596875-00

PATIENT
  Age: 56 Year
  Sex: Female

DRUGS (5)
  1. HUMIRA [Suspect]
     Indication: RHEUMATOID ARTHRITIS
     Route: 058
     Dates: start: 20080101, end: 20090801
  2. HUMIRA [Suspect]
     Route: 058
     Dates: start: 20090904
  3. MOTRIN [Concomitant]
     Indication: ARTHRALGIA
  4. ARAVA [Concomitant]
     Indication: DRUG USE FOR UNKNOWN INDICATION
  5. DARVOCET-N 100 [Concomitant]
     Indication: PAIN

REACTIONS (4)
  - ARTHRALGIA [None]
  - DIABETES MELLITUS [None]
  - INFLUENZA LIKE ILLNESS [None]
  - JOINT SWELLING [None]
